FAERS Safety Report 23972154 (Version 1)
Quarter: 2024Q2

REPORT INFORMATION
  Report Type: Spontaneous
  Country: US (occurrence: None)
  Receive Date: 20240613
  Receipt Date: 20240613
  Transmission Date: 20240716
  Serious: Yes (Other)
  Sender: FDA-Public Use
  Company Number: US-MDD US Operations-MDD202304-001698

PATIENT
  Age: 86 Year
  Sex: Female

DRUGS (6)
  1. APOKYN [Suspect]
     Active Substance: APOMORPHINE HYDROCHLORIDE
     Indication: Parkinson^s disease
     Dates: start: 202303
  2. APOKYN [Suspect]
     Active Substance: APOMORPHINE HYDROCHLORIDE
     Dosage: A MONTH AGO
     Route: 058
     Dates: start: 202305
  3. CARBIDOPA\LEVODOPA [Concomitant]
     Active Substance: CARBIDOPA\LEVODOPA
     Dosage: NOT PROVIDED
  4. CARBIDOPA [Concomitant]
     Active Substance: CARBIDOPA
     Dosage: NOT PROVIDED
  5. TELMISARTAN [Concomitant]
     Active Substance: TELMISARTAN
     Dosage: 80MG
  6. PREGABALIN [Concomitant]
     Active Substance: PREGABALIN
     Dosage: 75MG

REACTIONS (4)
  - Lower limb fracture [Unknown]
  - Fall [Unknown]
  - Vision blurred [Unknown]
  - Therapy interrupted [Unknown]

NARRATIVE: CASE EVENT DATE: 20230401
